FAERS Safety Report 25989614 (Version 1)
Quarter: 2025Q4

REPORT INFORMATION
  Report Type: Spontaneous
  Country: US (occurrence: None)
  Receive Date: 20251031
  Receipt Date: 20251031
  Transmission Date: 20260117
  Serious: Yes (Disabling)
  Sender: FDA-CTU
  Company Number: None

PATIENT
  Age: 69 Year
  Sex: Male
  Weight: 99 kg

DRUGS (6)
  1. OLMESARTAN MEDOXOMIL [Suspect]
     Active Substance: OLMESARTAN MEDOXOMIL
     Indication: Hypertension
     Dosage: OTHER QUANTITY : 1 TABLET(S);?
     Route: 048
     Dates: start: 20251008, end: 20251031
  2. RAMIPRIL [Suspect]
     Active Substance: RAMIPRIL
  3. Verapamil 120mg [Concomitant]
  4. OLMESARTAN [Concomitant]
     Active Substance: OLMESARTAN
  5. PREVACID [Concomitant]
     Active Substance: LANSOPRAZOLE
  6. 81mg aspirin [Concomitant]

REACTIONS (1)
  - Macular oedema [None]

NARRATIVE: CASE EVENT DATE: 20251021
